FAERS Safety Report 17084186 (Version 1)
Quarter: 2019Q4

REPORT INFORMATION
  Report Type: Report from Study
  Country: CA (occurrence: CA)
  Receive Date: 20191127
  Receipt Date: 20191127
  Transmission Date: 20200122
  Serious: Yes (Other)
  Sender: FDA-Public Use
  Company Number: CA-BAUSCH-BL-2019-022022

PATIENT
  Age: 59 Year
  Sex: Male

DRUGS (4)
  1. STELARA [Concomitant]
     Active Substance: USTEKINUMAB
     Indication: PRODUCT USED FOR UNKNOWN INDICATION
  2. SILIQ [Suspect]
     Active Substance: BRODALUMAB
     Dosage: 210 MG/ 1.5 ML
     Route: 058
     Dates: start: 2019
  3. CLOBETASOL [Concomitant]
     Active Substance: CLOBETASOL
     Indication: PRODUCT USED FOR UNKNOWN INDICATION
  4. SILIQ [Suspect]
     Active Substance: BRODALUMAB
     Indication: PSORIASIS
     Dosage: 210 MG/ 1.5 ML, AT WEEKS 0, 1 AND 2
     Route: 058
     Dates: start: 20190726, end: 201908

REACTIONS (3)
  - Chest pain [Unknown]
  - Blood pressure increased [Not Recovered/Not Resolved]
  - Dyspnoea [Unknown]

NARRATIVE: CASE EVENT DATE: 201907
